FAERS Safety Report 12650709 (Version 3)
Quarter: 2016Q4

REPORT INFORMATION
  Report Type: Report from Study
  Country: US (occurrence: US)
  Receive Date: 20160815
  Receipt Date: 20161103
  Transmission Date: 20170207
  Serious: Yes (Hospitalization)
  Sender: FDA-Public Use
  Company Number: US-ROCHE-1680545

PATIENT
  Age: 36 Year
  Sex: Male
  Weight: 95.7 kg

DRUGS (14)
  1. GDC-0919 (IDO1 INHIBITOR) [Suspect]
     Active Substance: INVESTIGATIONAL PRODUCT
     Indication: ADENOCARCINOMA
     Dosage: MOST RECENT DOSE OF 200 MG GDC-0919 PRIOR TO AE ONSET 17/DEC/2015. 50MG CAPSULE
     Route: 048
     Dates: start: 20151202, end: 20151217
  2. ATEZOLIZUMAB [Suspect]
     Active Substance: ATEZOLIZUMAB
     Indication: ADENOCARCINOMA
     Dosage: MOST RECENT DOSE OF 1200 MG ATEZOLIZUMAB PRIOR TO AE ONSET 03/DEC/2015
     Route: 042
     Dates: start: 20151203, end: 20151203
  3. ASPIRIN. [Concomitant]
     Active Substance: ASPIRIN
     Indication: BACK PAIN
     Route: 048
  4. LOPERAMIDE [Concomitant]
     Active Substance: LOPERAMIDE
     Indication: PROPHYLAXIS
     Route: 048
  5. TYLENOL PM [Concomitant]
     Active Substance: ACETAMINOPHEN\DIPHENHYDRAMINE
     Indication: PYREXIA
     Route: 048
     Dates: start: 20151217, end: 20151217
  6. IBUPROFEN. [Concomitant]
     Active Substance: IBUPROFEN
     Indication: BACK PAIN
     Dosage: 200MG TABLET
     Route: 048
  7. ALBUTEROL HFA [Concomitant]
     Active Substance: ALBUTEROL SULFATE
     Indication: DYSPNOEA
     Route: 055
  8. CETIRIZINE [Concomitant]
     Active Substance: CETIRIZINE HYDROCHLORIDE
     Indication: HYPERSENSITIVITY
     Route: 048
  9. IBUPROFEN. [Concomitant]
     Active Substance: IBUPROFEN
     Indication: PYREXIA
     Route: 065
     Dates: start: 20151217, end: 20151217
  10. FORMOTEROL FUMARATE/MOMETASONE FUROATE [Concomitant]
     Active Substance: FORMOTEROL FUMARATE\MOMETASONE FUROATE
     Indication: ASTHMA
     Dosage: 5-100 UG
     Route: 055
  11. GDC-0919 (IDO1 INHIBITOR) [Suspect]
     Active Substance: INVESTIGATIONAL PRODUCT
     Indication: COLON CANCER METASTATIC
  12. ATEZOLIZUMAB [Suspect]
     Active Substance: ATEZOLIZUMAB
     Indication: COLON CANCER METASTATIC
  13. PROCHLORPERAZINE. [Concomitant]
     Active Substance: PROCHLORPERAZINE
     Indication: PROPHYLAXIS OF NAUSEA AND VOMITING
     Route: 048
  14. AZITHROMYCIN ANHYDROUS. [Concomitant]
     Active Substance: AZITHROMYCIN ANHYDROUS
     Indication: BRONCHITIS

REACTIONS (2)
  - Retinal vasculitis [Not Recovered/Not Resolved]
  - Sepsis syndrome [Recovered/Resolved]

NARRATIVE: CASE EVENT DATE: 20151218
